FAERS Safety Report 6269742-X (Version None)
Quarter: 2009Q3

REPORT INFORMATION
  Report Type: 
  Country: None (occurrence: None)
  Receive Date: 20090716
  Receipt Date: 20090706
  Transmission Date: 20100115
  Serious: Yes (Hospitalization)
  Sender: FDA-Public Use
  Company Number: IT-ASTRAZENECA-2009SE03763

PATIENT
  Age: 25579 Day
  Sex: Male

DRUGS (1)
  1. ROSUVASTATINA [Suspect]
     Indication: HYPERCHOLESTEROLAEMIA
     Route: 048
     Dates: start: 20090415, end: 20090515

REACTIONS (1)
  - ECZEMA [None]
